FAERS Safety Report 6403299-5 (Version None)
Quarter: 2009Q4

REPORT INFORMATION
  Report Type: 
  Country: None (occurrence: None)
  Receive Date: 20091016
  Receipt Date: 20091007
  Transmission Date: 20100525
  Serious: Yes (Hospitalization)
  Sender: FDA-Public Use
  Company Number: NZ-ASTRAZENECA-2009SE18809

PATIENT
  Age: 27165 Day
  Sex: Male

DRUGS (5)
  1. OMEPRAZOLE [Suspect]
     Route: 048
     Dates: end: 20030215
  2. SPIRONOLACTONE [Suspect]
     Indication: ESSENTIAL HYPERTENSION
     Route: 048
     Dates: end: 20030214
  3. FELODIPINE [Concomitant]
     Route: 048
  4. TERAZOSIN HCL [Concomitant]
     Route: 048
  5. PAROXETINE [Concomitant]
     Route: 048

REACTIONS (3)
  - DEHYDRATION [None]
  - DIARRHOEA [None]
  - NAUSEA [None]
